FAERS Safety Report 20849269 (Version 1)
Quarter: 2022Q2

REPORT INFORMATION
  Report Type: Report from Study
  Country: CA (occurrence: CA)
  Receive Date: 20220519
  Receipt Date: 20220519
  Transmission Date: 20220721
  Serious: Yes (Life-Threatening, Hospitalization, Other)
  Sender: FDA-Public Use
  Company Number: CA-AMGEN-CANSL2022081595

PATIENT
  Age: 70 Year
  Sex: Female

DRUGS (1)
  1. REPATHA [Suspect]
     Active Substance: EVOLOCUMAB
     Indication: Hypercholesterolaemia
     Dosage: 140 MILLIGRAM PER MILLILITRE
     Route: 065
     Dates: start: 202111

REACTIONS (6)
  - Cardiac operation [Unknown]
  - Endotracheal intubation [Unknown]
  - Cardiac valve rupture [Unknown]
  - Amnesia [Unknown]
  - Impaired work ability [Unknown]
  - Throat irritation [Unknown]

NARRATIVE: CASE EVENT DATE: 20210101
